FAERS Safety Report 10440477 (Version 2)
Quarter: 2015Q1

REPORT INFORMATION
  Report Type: Report from Study
  Country: US (occurrence: US)
  Receive Date: 20140909
  Receipt Date: 20150304
  Transmission Date: 20150720
  Serious: Yes (Hospitalization)
  Sender: FDA-Public Use
  Company Number: US-BIOGENIDEC-2014BI088055

PATIENT
  Age: 34 Year
  Sex: Female

DRUGS (1)
  1. TECFIDERA [Suspect]
     Active Substance: DIMETHYL FUMARATE
     Indication: MULTIPLE SCLEROSIS
     Dates: start: 20130726, end: 20140815

REACTIONS (11)
  - Hypoaesthesia [Not Recovered/Not Resolved]
  - Cholelithiasis [Unknown]
  - Visual impairment [Unknown]
  - Seizure [Recovered/Resolved]
  - Balance disorder [Not Recovered/Not Resolved]
  - Muscle tightness [Not Recovered/Not Resolved]
  - Memory impairment [Not Recovered/Not Resolved]
  - Nephrolithiasis [Unknown]
  - Pain [Unknown]
  - Central nervous system lesion [Not Recovered/Not Resolved]
  - Fall [Not Recovered/Not Resolved]

NARRATIVE: CASE EVENT DATE: 2014
